FAERS Safety Report 5813034-7 (Version None)
Quarter: 2008Q3

REPORT INFORMATION
  Report Type: 
  Country: None (occurrence: None)
  Receive Date: 20080717
  Receipt Date: 20071107
  Transmission Date: 20090109
  Serious: No
  Sender: FDA-Public Use
  Company Number: A0691913A

PATIENT
  Age: 53 Year
  Sex: Female

DRUGS (4)
  1. TARGET ORIGINAL 4MG [Suspect]
     Dates: start: 20070611
  2. NICOTINE [Suspect]
     Dates: start: 20071022
  3. NICORETTE [Suspect]
  4. COMMIT [Suspect]

REACTIONS (2)
  - GINGIVAL BLEEDING [None]
  - INTENTIONAL DRUG MISUSE [None]
